FAERS Safety Report 9466275 (Version 2)
Quarter: 2013Q4

REPORT INFORMATION
  Report Type: Spontaneous
  Country: CA (occurrence: CA)
  Receive Date: 20130820
  Receipt Date: 20131011
  Transmission Date: 20140711
  Serious: Yes (Other)
  Sender: FDA-Public Use
  Company Number: CA-SANOFI-AVENTIS-2013SA081570

PATIENT
  Age: 71 Year
  Sex: Female
  Weight: 200 kg

DRUGS (1)
  1. IRBESARTAN + HCTZ [Suspect]
     Indication: HYPERTENSION
     Route: 065
     Dates: start: 2005

REACTIONS (1)
  - Palpitations [Recovered/Resolved]
